FAERS Safety Report 5549670-5 (Version None)
Quarter: 2007Q4

REPORT INFORMATION
  Report Type: 
  Country: None (occurrence: None)
  Receive Date: 20071210
  Receipt Date: 20071203
  Transmission Date: 20080405
  Serious: Yes (Death, Life-Threatening, Hospitalization)
  Sender: FDA-Public Use
  Company Number: CLOF-10615

PATIENT
  Age: 39 Year
  Sex: Male

DRUGS (25)
  1. CLOFARABINE. MFR: GENZYME [Suspect]
     Indication: BONE MARROW CONDITIONING REGIMEN
     Dosage: 20 MG/M2 QD IV
     Route: 042
     Dates: start: 20070624, end: 20070626
  2. CLOFARABINE. MFR: GENZYME [Suspect]
     Indication: BONE MARROW CONDITIONING REGIMEN
     Dosage: 20 MG/M2 QD IV
     Route: 042
     Dates: start: 20070627, end: 20070628
  3. MELPHALAN [Suspect]
     Indication: BONE MARROW CONDITIONING REGIMEN
     Dosage: 70 MG/M2 QD IV
     Route: 042
     Dates: start: 20070630, end: 20070701
  4. THIOTEPA [Suspect]
     Indication: BONE MARROW CONDITIONING REGIMEN
     Dosage: 10 MG/KG ONCE IV
     Route: 042
     Dates: start: 20070629, end: 20070629
  5. VANCOMYCIN [Concomitant]
  6. MYCOPHENOLATE MOFETIL [Concomitant]
  7. IPRATROPIUM/ALBUTEROL [Concomitant]
  8. LEVOFLOXACIN [Concomitant]
  9. FILGRASTIM [Concomitant]
  10. MUPIROCIN [Concomitant]
  11. DAPTOMYCIN [Concomitant]
  12. SIROLIMUS [Concomitant]
  13. MEROPENEM [Concomitant]
  14. PANTOPRAZOLE SODIUM [Concomitant]
  15. MICAFUNGIN SODIUM [Concomitant]
  16. FOLIC ACID [Concomitant]
  17. METRONIDAZOLE HCL [Concomitant]
  18. HYDROCORTISONE-NEOMYCIN-POLYMYXIN B. [Concomitant]
  19. PHYTONADIONE [Concomitant]
  20. METHYLPREDNISOLONE [Concomitant]
  21. LEUKINE [Concomitant]
  22. ALBUMIN (HUMAN) [Concomitant]
  23. CYANACOBALAMIN [Concomitant]
  24. ACYCLOVIR [Concomitant]
  25. SOLIA [Concomitant]

REACTIONS (26)
  - ABDOMINAL DISTENSION [None]
  - CATHETER SEPSIS [None]
  - CATHETER SITE ERYTHEMA [None]
  - CATHETER SITE PAIN [None]
  - CONFUSIONAL STATE [None]
  - DIARRHOEA [None]
  - ENTEROCOCCAL INFECTION [None]
  - GENERAL PHYSICAL HEALTH DETERIORATION [None]
  - GRAFT VERSUS HOST DISEASE [None]
  - HAEMATEMESIS [None]
  - HAEMOPTYSIS [None]
  - HALLUCINATION [None]
  - HEPATIC STEATOSIS [None]
  - HYPERBILIRUBINAEMIA [None]
  - HYPOTENSION [None]
  - LOWER GASTROINTESTINAL HAEMORRHAGE [None]
  - MENTAL STATUS CHANGES [None]
  - MUCOSAL INFLAMMATION [None]
  - NEUTROPENIA [None]
  - PYREXIA [None]
  - RENAL FAILURE [None]
  - RENAL FAILURE ACUTE [None]
  - SPLENOMEGALY [None]
  - STAPHYLOCOCCAL INFECTION [None]
  - STEM CELL TRANSPLANT [None]
  - VENOOCCLUSIVE LIVER DISEASE [None]
